FAERS Safety Report 7901325 (Version 2)
Quarter: 2013Q1

REPORT INFORMATION
  Report Type: Spontaneous
  Country: US (occurrence: None)
  Receive Date: 20110324
  Receipt Date: 20121009
  Transmission Date: 20140127
  Serious: Yes (Other)
  Sender: FDA-Public Use
  Company Number: 2011MA002539

PATIENT
  Sex: Male

DRUGS (53)
  1. METOCLOPRAMIDE [Suspect]
     Route: 048
     Dates: start: 20081127, end: 200902
  2. AMITRYPTILINE [Concomitant]
  3. AMOXICILLIN [Concomitant]
  4. AMOXIL [Concomitant]
  5. AZITHROMYCIN [Concomitant]
  6. BIAXIN [Concomitant]
  7. CARDIZEM [Concomitant]
  8. CARISOPRODOL [Concomitant]
  9. CENTRAL VITE [Concomitant]
  10. CHLORPHENIRAMINE [Concomitant]
  11. CITALOPRAM [Concomitant]
  12. CLINDAMYCIN [Concomitant]
  13. CLONAZEPAM [Concomitant]
  14. CLONDIINE [Concomitant]
  15. DEPAKOTE [Concomitant]
  16. DESPIRAMINE (FORMULATION UNKNOW) (DESIPRAMINE [Concomitant]
  17. DIAZEPAM [Concomitant]
  18. DOXAZOSIN [Concomitant]
  19. DOXYCYCLINE [Concomitant]
  20. ERYTHROMYCIN [Concomitant]
  21. FERROUS SULFATE [Concomitant]
  22. GUAFENESIN [Concomitant]
  23. HYDROCODONE [Concomitant]
  24. HYDROXYZINE [Concomitant]
  25. ISOCET [Concomitant]
  26. LEXAPRO [Concomitant]
  27. LITHIUM CARBONATE [Concomitant]
  28. LORAZEPAM [Concomitant]
  29. LORTAB [Concomitant]
  30. METHOCARBAMOL [Concomitant]
  31. NAPROXEN [Concomitant]
  32. NASACORT [Concomitant]
  33. NEURONTIN [Concomitant]
  34. NIFEDIAC [Concomitant]
  35. OMEPRAZOLE [Concomitant]
  36. PAXIL [Concomitant]
  37. PENICILLIN VK [Concomitant]
  38. PHENERGAN [Concomitant]
  39. PREDNISOLONE [Concomitant]
  40. PRILOSEC [Concomitant]
  41. PROMETHAZINE [Concomitant]
  42. PROPOXYPHENE/APAP [Concomitant]
  43. PROVIGIL [Concomitant]
  44. PROZAC [Concomitant]
  45. PSEUDOEPHEDRINE [Concomitant]
  46. RANITIDINE [Concomitant]
  47. SERZONE [Concomitant]
  48. SIMETIDINE [Concomitant]
  49. SUBOXONE [Concomitant]
  50. SUDOGEST [Concomitant]
  51. TRAMADOL [Concomitant]
  52. ZOCOR [Concomitant]
  53. ZYPREXA [Concomitant]

REACTIONS (9)
  - Tardive dyskinesia [None]
  - Dystonia [None]
  - Akathisia [None]
  - Extrapyramidal disorder [None]
  - Tremor [None]
  - Injury [None]
  - Dyskinesia [None]
  - Economic problem [None]
  - Emotional disorder [None]
